FAERS Safety Report 19273894 (Version 1)
Quarter: 2021Q2

REPORT INFORMATION
  Report Type: Spontaneous
  Country: US (occurrence: US)
  Receive Date: 20210518
  Receipt Date: 20210518
  Transmission Date: 20210717
  Serious: No
  Sender: FDA-Public Use
  Company Number: None

PATIENT
  Age: 29 Year
  Sex: Female
  Weight: 84.6 kg

DRUGS (3)
  1. BUPROPION 300MG [Concomitant]
     Active Substance: BUPROPION
  2. BUPROPION HYDROCHLORIDE XL [Suspect]
     Active Substance: BUPROPION HYDROCHLORIDE
     Indication: DEPRESSION
     Dosage: ?          QUANTITY:30 TABLET(S);?
     Route: 048
     Dates: start: 20210416, end: 20210518
  3. MODAFINIL 150MG [Concomitant]

REACTIONS (3)
  - Condition aggravated [None]
  - Drug ineffective [None]
  - Libido decreased [None]

NARRATIVE: CASE EVENT DATE: 20210504
